FAERS Safety Report 13843573 (Version 3)
Quarter: 2018Q4

REPORT INFORMATION
  Report Type: Spontaneous
  Country: US (occurrence: US)
  Receive Date: 20170808
  Receipt Date: 20181106
  Transmission Date: 20190204
  Serious: Yes (Death)
  Sender: FDA-Public Use
  Company Number: US-GE HEALTHCARE LIFE SCIENCES-OSCN-PR-1701S-0005

PATIENT
  Age: 63 Year
  Sex: Female

DRUGS (20)
  1. OMNISCAN [Suspect]
     Active Substance: GADODIAMIDE
     Indication: RENAL FAILURE
     Dosage: 40 ML, SINGLE
     Route: 065
     Dates: start: 20050321, end: 20050321
  2. OMNIPAQUE [Concomitant]
     Active Substance: IOHEXOL
     Indication: PRODUCT USED FOR UNKNOWN INDICATION
     Dosage: 55 ML, SINGLE
     Route: 042
     Dates: start: 20150220, end: 20150220
  3. OMNIPAQUE [Concomitant]
     Active Substance: IOHEXOL
     Dosage: 1000 ML, SINGLE
     Route: 048
     Dates: start: 20140515, end: 20140515
  4. OMNIPAQUE [Concomitant]
     Active Substance: IOHEXOL
     Indication: HAEMOPTYSIS
     Dosage: 80 ML, SINGLE
     Route: 065
     Dates: start: 20140226, end: 20140226
  5. OMNIPAQUE [Concomitant]
     Active Substance: IOHEXOL
     Dosage: 50 ML, SINGLE
     Route: 042
     Dates: start: 20141103, end: 20141103
  6. ISOVUE 370 [Concomitant]
     Active Substance: IOPAMIDOL
     Dosage: 80 ML, SINGLE
     Route: 042
     Dates: start: 20090819, end: 20090819
  7. ISOVUE 370 [Concomitant]
     Active Substance: IOPAMIDOL
     Dosage: 120 ML, SINGLE
     Dates: start: 20100818, end: 20100818
  8. ISOVUE 300 [Concomitant]
     Active Substance: IOPAMIDOL
     Indication: PRODUCT USED FOR UNKNOWN INDICATION
     Dosage: 6 ML, SINGLE
  9. OMNIPAQUE [Concomitant]
     Active Substance: IOHEXOL
     Dosage: 15 ML, SINGLE
     Route: 042
     Dates: start: 20141229, end: 20141229
  10. VISIPAQUE [Concomitant]
     Active Substance: IODIXANOL
     Indication: PRODUCT USED FOR UNKNOWN INDICATION
     Dosage: 30 ML, SINGLE
     Route: 042
     Dates: start: 20060525, end: 20060525
  11. ISOVUE 370 [Concomitant]
     Active Substance: IOPAMIDOL
     Dosage: 120 ML, SINGLE
     Route: 042
     Dates: start: 20091027, end: 20091027
  12. MEBROFENIN. [Concomitant]
     Active Substance: MEBROFENIN
     Dosage: UNK
     Dates: start: 20071211, end: 20071211
  13. ISOVUE 370 [Concomitant]
     Active Substance: IOPAMIDOL
     Indication: ABDOMINAL PAIN
     Dosage: 125 ML, SINGLE
     Dates: start: 20050913, end: 20050913
  14. OMNIPAQUE [Concomitant]
     Active Substance: IOHEXOL
     Dosage: 60 ML, SINGLE
     Route: 042
     Dates: start: 20140916, end: 20140916
  15. ISOVUE 370 [Concomitant]
     Active Substance: IOPAMIDOL
     Dosage: 80 ML, SINGLE
     Route: 042
     Dates: start: 20100803, end: 20100803
  16. OMNIPAQUE [Concomitant]
     Active Substance: IOHEXOL
     Indication: PRODUCT USED FOR UNKNOWN INDICATION
     Dosage: 1000 ML, SINGLE
     Route: 048
     Dates: start: 20150326, end: 20150326
  17. VISIPAQUE [Concomitant]
     Active Substance: IODIXANOL
     Indication: PRODUCT USED FOR UNKNOWN INDICATION
     Route: 042
  18. ISOVUE 370 [Concomitant]
     Active Substance: IOPAMIDOL
     Dosage: 100 ML, SINGLE
     Route: 042
     Dates: start: 20100927, end: 20100927
  19. VISIPAQUE [Concomitant]
     Active Substance: IODIXANOL
     Dosage: 100 ML, SINGLE
     Dates: start: 20081208, end: 20081208
  20. ISOVUE 370 [Concomitant]
     Active Substance: IOPAMIDOL
     Dosage: 120 ML, SINGLE
     Dates: start: 20130411, end: 20130411

REACTIONS (2)
  - End stage renal disease [Fatal]
  - Nephrogenic systemic fibrosis [Fatal]

NARRATIVE: CASE EVENT DATE: 20150410
